FAERS Safety Report 20137206 (Version 2)
Quarter: 2021Q4

REPORT INFORMATION
  Report Type: Spontaneous
  Country: US (occurrence: US)
  Receive Date: 20211201
  Receipt Date: 20211213
  Transmission Date: 20220303
  Serious: Yes (Hospitalization)
  Sender: FDA-Public Use
  Company Number: US-TEVA-2021-US-1982289

PATIENT
  Age: 77 Year
  Sex: Female

DRUGS (2)
  1. ALENDRONIC ACID [Suspect]
     Active Substance: ALENDRONIC ACID
     Indication: Osteoporosis
     Dosage: RECEIVING FROM 2 YEARS
     Route: 065
  2. LISINOPRIL [Concomitant]
     Active Substance: LISINOPRIL
     Indication: Hypertension
     Dosage: RECEIVING FROM 2 YEARS
     Route: 065

REACTIONS (1)
  - Tubulointerstitial nephritis and uveitis syndrome [Recovered/Resolved]
